FAERS Safety Report 6128762-6 (Version None)
Quarter: 2009Q1

REPORT INFORMATION
  Report Type: 
  Country: None (occurrence: None)
  Receive Date: 20090320
  Receipt Date: 20090311
  Transmission Date: 20090719
  Serious: Yes (Hospitalization)
  Sender: FDA-Public Use
  Company Number: 1000001460

PATIENT
  Age: 34 Year
  Sex: Male

DRUGS (3)
  1. ESCITALOPRAM [Suspect]
     Dosage: 30 MG (30 MG,1 IN 1 D),ORAL
     Route: 048
     Dates: start: 20080109, end: 20080114
  2. ESCITALOPRAM OXALATE [Suspect]
     Dosage: 10 MG (10 MG,1 IN 1 D),ORAL ; 20 MG (20 MG,1 IN 1 D),ORAL
     Route: 048
     Dates: start: 20071201, end: 20080103
  3. ESCITALOPRAM OXALATE [Suspect]
     Dosage: 10 MG (10 MG,1 IN 1 D),ORAL ; 20 MG (20 MG,1 IN 1 D),ORAL
     Route: 048
     Dates: start: 20080104, end: 20080108

REACTIONS (4)
  - FATIGUE [None]
  - OBSESSIVE THOUGHTS [None]
  - OVERDOSE [None]
  - SEDATION [None]
